FAERS Safety Report 4735808-6 (Version None)
Quarter: 2005Q3

REPORT INFORMATION
  Report Type: 
  Country: None (occurrence: None)
  Receive Date: 20050802
  Receipt Date: 20050725
  Transmission Date: 20060218
  Serious: Yes (Other)
  Sender: FDA-Public Use
  Company Number: ZICO001249

PATIENT
  Age: 51 Year
  Sex: Male

DRUGS (10)
  1. PRIALT (ZICONOTIDE INTRATHECAL INFUSION) [Suspect]
     Indication: BACK PAIN
     Dosage: 0.05 MCG/HR INTRATHECAL
     Route: 039
     Dates: start: 20050524, end: 20050526
  2. DILAUID (HYDROMORPHONE HYDROCHLORIDE) [Concomitant]
  3. BUPIVACAINE [Concomitant]
  4. OXYCONTIN [Concomitant]
  5. TOPOMAX (TOPIRAMATE) [Concomitant]
  6. DILAUDID [Concomitant]
  7. BUPIVACAINE (BUPIVACINE) [Concomitant]
  8. ZOLOFT [Concomitant]
  9. CYMBALTA [Concomitant]
  10. PROVIGIL [Concomitant]

REACTIONS (4)
  - AGGRESSION [None]
  - ANGER [None]
  - DYSGEUSIA [None]
  - PAIN [None]
